FAERS Safety Report 10128085 (Version 1)
Quarter: 2014Q2

REPORT INFORMATION
  Report Type: Spontaneous
  Country: GB (occurrence: GB)
  Receive Date: 20140428
  Receipt Date: 20140428
  Transmission Date: 20141212
  Serious: Yes (Other)
  Sender: FDA-Public Use
  Company Number: GB-ROCHE-1388405

PATIENT
  Age: 48 Year
  Sex: Female
  Weight: 85.7 kg

DRUGS (1)
  1. TAMIFLU [Suspect]
     Indication: ANTIVIRAL PROPHYLAXIS
     Route: 065
     Dates: start: 200906, end: 200907

REACTIONS (2)
  - Dyspnoea [Not Recovered/Not Resolved]
  - Convulsion [Not Recovered/Not Resolved]
